FAERS Safety Report 18839404 (Version 1)
Quarter: 2021Q1

REPORT INFORMATION
  Report Type: Report from Study
  Country: US (occurrence: US)
  Receive Date: 20210203
  Receipt Date: 20210203
  Transmission Date: 20210419
  Serious: No
  Sender: FDA-Public Use
  Company Number: US-EXELIXIS-CABO-20032690

PATIENT
  Sex: Male

DRUGS (7)
  1. CABOMETYX [Suspect]
     Active Substance: CABOZANTINIB S-MALATE
     Indication: RENAL CANCER
     Dosage: 40 MG, QD
     Route: 048
     Dates: start: 20180525
  2. LISINOPRIL. [Concomitant]
     Active Substance: LISINOPRIL
  3. IMODIUM MULTI?SYMPTOM RELIEF [Concomitant]
     Active Substance: DIMETHICONE\LOPERAMIDE HYDROCHLORIDE
  4. SAVAYSA [Concomitant]
     Active Substance: EDOXABAN TOSYLATE
  5. ZOCOR [Concomitant]
     Active Substance: SIMVASTATIN
  6. NIFEDIPINE. [Concomitant]
     Active Substance: NIFEDIPINE
  7. TEGRETOL [Concomitant]
     Active Substance: CARBAMAZEPINE

REACTIONS (2)
  - Acne [Unknown]
  - Diarrhoea [Unknown]
